FAERS Safety Report 9250040 (Version 3)
Quarter: 2013Q3

REPORT INFORMATION
  Report Type: Report from Study
  Country: DE (occurrence: DE)
  Receive Date: 20130424
  Receipt Date: 20130909
  Transmission Date: 20140515
  Serious: Yes (Hospitalization)
  Sender: FDA-Public Use
  Company Number: DE-BIOGENIDEC-2013BI035838

PATIENT
  Age: 34 Year
  Sex: Female
  Weight: 98 kg

DRUGS (5)
  1. TYSABRI [Suspect]
     Indication: RELAPSING-REMITTING MULTIPLE SCLEROSIS
     Route: 042
     Dates: start: 20120417, end: 20130314
  2. TYSABRI [Suspect]
     Indication: RELAPSING-REMITTING MULTIPLE SCLEROSIS
     Route: 042
     Dates: start: 20130518
  3. ELONTRIL [Concomitant]
     Indication: DEPRESSION
     Route: 048
  4. L-THYROXINE [Concomitant]
     Indication: HYPOTHYROIDISM
     Route: 048
     Dates: start: 20080101
  5. OPIPRAMOLE [Concomitant]
     Indication: DEPRESSION
     Route: 048
     Dates: start: 20130415

REACTIONS (1)
  - Multiple sclerosis relapse [Recovered/Resolved]
